FAERS Safety Report 11052633 (Version 2)
Quarter: 2015Q2

REPORT INFORMATION
  Report Type: Report from Study
  Country: BR (occurrence: BR)
  Receive Date: 20150421
  Receipt Date: 20150619
  Transmission Date: 20150821
  Serious: Yes (Death, Hospitalization, Other)
  Sender: FDA-Public Use
  Company Number: BR-BAYER-2015-119220

PATIENT
  Age: 65 Year
  Sex: Male

DRUGS (1)
  1. NEXAVAR [Suspect]
     Active Substance: SORAFENIB
     Indication: HEPATIC CANCER
     Dosage: 4 DF, QD
     Route: 048
     Dates: end: 2014

REACTIONS (5)
  - Hepatic cirrhosis [Not Recovered/Not Resolved]
  - Pneumonia [None]
  - Hepatic haemorrhage [Fatal]
  - Immunodeficiency [None]
  - Renal failure [Fatal]
